FAERS Safety Report 5077024-7 (Version None)
Quarter: 2006Q3

REPORT INFORMATION
  Report Type: 
  Country: None (occurrence: None)
  Receive Date: 20060810
  Receipt Date: 20060807
  Transmission Date: 20061208
  Serious: Yes (Hospitalization)
  Sender: FDA-Public Use
  Company Number: US-MERCK-0608USA01594

PATIENT
  Age: 60 Year
  Sex: Female

DRUGS (2)
  1. FOSAMAX [Suspect]
     Indication: OSTEOPENIA
     Route: 048
     Dates: end: 20020101
  2. FOSAMAX [Suspect]
     Route: 048
     Dates: start: 20020101

REACTIONS (2)
  - ARTHROPATHY [None]
  - RESORPTION BONE INCREASED [None]
